FAERS Safety Report 19755130 (Version 1)
Quarter: 2021Q3

REPORT INFORMATION
  Report Type: Report from Study
  Country: CA (occurrence: CA)
  Receive Date: 20210827
  Receipt Date: 20210827
  Transmission Date: 20211014
  Serious: Yes (Other)
  Sender: FDA-Public Use
  Company Number: CA-ORION CORPORATION ORION PHARMA-20_00009635

PATIENT
  Sex: Male

DRUGS (6)
  1. METHOTREXATE (TRADE NAME UNKNOWN) [Suspect]
     Active Substance: METHOTREXATE
     Indication: PRODUCT USED FOR UNKNOWN INDICATION
     Route: 065
  2. CICLOSPORIN [Suspect]
     Active Substance: CYCLOSPORINE
     Indication: PRODUCT USED FOR UNKNOWN INDICATION
     Route: 065
  3. COSENTYX [Suspect]
     Active Substance: SECUKINUMAB
     Indication: PSORIASIS
     Route: 058
  4. DOVONEX [Concomitant]
     Active Substance: CALCIPOTRIENE
     Route: 065
  5. BETAMETHASONE DIPROPIONATE?CALCIPOTRIOL [Concomitant]
     Route: 065
  6. BETAMETHASONE DIPROPIONATE?CALCIPOTRIOL [Concomitant]
     Route: 065

REACTIONS (7)
  - Haemoglobin increased [Unknown]
  - Drug ineffective [Unknown]
  - Alanine aminotransferase increased [Unknown]
  - Skin fissures [Unknown]
  - Psoriasis [Unknown]
  - Mean cell haemoglobin increased [Unknown]
  - Red blood cell count increased [Unknown]
